FAERS Safety Report 7183938-4 (Version None)
Quarter: 2010Q4

REPORT INFORMATION
  Report Type: 
  Country: None (occurrence: None)
  Receive Date: 20101210
  Receipt Date: 20101130
  Transmission Date: 20110411
  Serious: Yes (Hospitalization)
  Sender: FDA-Public Use
  Company Number: 022973

PATIENT
  Age: 61 Year
  Sex: Female

DRUGS (6)
  1. KEPPRA [Suspect]
     Indication: CONVULSION
     Dosage: 500 MG BID ORAL
     Route: 048
     Dates: start: 20090101, end: 20100731
  2. DEPRAX /00447702/ (DEPRAX [Suspect]
     Indication: DEPRESSION
     Dosage: 100 MG QS ORAL
     Route: 048
     Dates: start: 20100728, end: 20100731
  3. ENALAPRIL MALEATE [Concomitant]
  4. PROPENTOFYLLINE [Concomitant]
  5. ADIRO [Concomitant]
  6. ZARATOR /01326101/ [Concomitant]

REACTIONS (5)
  - DEPRESSION [None]
  - DISORIENTATION [None]
  - INAPPROPRIATE ANTIDIURETIC HORMONE SECRETION [None]
  - MEMORY IMPAIRMENT [None]
  - STATUS EPILEPTICUS [None]
